FAERS Safety Report 8617621 (Version 2)
Quarter: 2015Q2

REPORT INFORMATION
  Report Type: Report from Study
  Country: US (occurrence: US)
  Receive Date: 20120615
  Receipt Date: 20150401
  Transmission Date: 20150821
  Serious: Yes (Death)
  Sender: FDA-Public Use
  Company Number: US-ROCHE-1078525

PATIENT
  Sex: Male

DRUGS (7)
  1. GEMZAR [Concomitant]
     Active Substance: GEMCITABINE HYDROCHLORIDE
     Dosage: IN 150 ML NS 22/JUL/2010
     Route: 042
     Dates: start: 20100708
  2. AVASTIN [Suspect]
     Active Substance: BEVACIZUMAB
     Indication: LUNG NEOPLASM MALIGNANT
     Dosage: 8/JUL/2010, 22/JUL/2010
     Route: 042
     Dates: start: 20100218
  3. SODIUM CHLORIDE. [Concomitant]
     Active Substance: SODIUM CHLORIDE
     Dosage: 22/JUL/2010
     Route: 042
     Dates: start: 20100708
  4. DEXAMETHASONE. [Concomitant]
     Active Substance: DEXAMETHASONE
     Dosage: IN 50 ML NS 22/JUL/2010
     Route: 042
     Dates: start: 20100708
  5. AVASTIN [Suspect]
     Active Substance: BEVACIZUMAB
     Indication: METASTASES TO NERVOUS SYSTEM
  6. ANZEMET [Concomitant]
     Active Substance: DOLASETRON MESYLATE
     Dosage: 22/JUL/2010
     Route: 042
     Dates: start: 20100708
  7. ARANESP [Concomitant]
     Active Substance: DARBEPOETIN ALFA
     Dosage: 22/JUL/2010
     Route: 058

REACTIONS (1)
  - Death [Fatal]
